FAERS Safety Report 6687514-9 (Version None)
Quarter: 2010Q2

REPORT INFORMATION
  Report Type: 
  Country: None (occurrence: None)
  Receive Date: 20100419
  Receipt Date: 20090505
  Transmission Date: 20101027
  Serious: No
  Sender: FDA-Public Use
  Company Number: US-ABBOTT-09P-163-0571664-00

PATIENT
  Sex: Male

DRUGS (2)
  1. LUPRON DEPOT-PED [Suspect]
     Indication: HORMONE LEVEL ABNORMAL
     Route: 030
     Dates: start: 20090101
  2. CORTISONE [Concomitant]
     Indication: HORMONE LEVEL ABNORMAL
     Route: 048

REACTIONS (1)
  - DRUG DOSE OMISSION [None]
